FAERS Safety Report 6041595-4 (Version None)
Quarter: 2009Q1

REPORT INFORMATION
  Report Type: 
  Country: None (occurrence: None)
  Receive Date: 20090116
  Receipt Date: 20090114
  Transmission Date: 20090719
  Serious: Yes (Hospitalization)
  Sender: FDA-Public Use
  Company Number: B0538236A

PATIENT
  Age: 64 Year
  Sex: Male

DRUGS (6)
  1. SERETIDE [Suspect]
     Indication: ASTHMA
     Dosage: 2PUFF TWICE PER DAY
     Route: 055
     Dates: start: 20081001
  2. SERETIDE [Suspect]
     Dosage: 1PUFF TWICE PER DAY
     Route: 055
     Dates: start: 20080101, end: 20081001
  3. VENTOLIN [Suspect]
     Indication: ASTHMA
     Dosage: 100MCG AS REQUIRED
     Route: 055
  4. GALANTAMINE HYDROBROMIDE [Suspect]
     Dosage: 8MG TWICE PER DAY
     Route: 048
     Dates: start: 20020101
  5. LANSOPRAZOLE [Suspect]
     Dosage: 30MG AT NIGHT
     Route: 048
  6. CODEINE [Suspect]
     Dosage: 30MG AS REQUIRED
     Route: 048

REACTIONS (5)
  - ASTHMA [None]
  - CLAVICLE FRACTURE [None]
  - COUGH [None]
  - JOINT DISLOCATION [None]
  - THROAT IRRITATION [None]
